FAERS Safety Report 12582529 (Version 1)
Quarter: 2016Q3

REPORT INFORMATION
  Report Type: Spontaneous
  Country: US (occurrence: None)
  Receive Date: 20160721
  Receipt Date: 20160721
  Transmission Date: 20161109
  Serious: No
  Sender: FDA-Public Use
  Company Number: None

PATIENT
  Age: 11 Year
  Sex: Male

DRUGS (1)
  1. ENBREL [Suspect]
     Active Substance: ETANERCEPT
     Indication: JUVENILE IDIOPATHIC ARTHRITIS

REACTIONS (5)
  - Underdose [None]
  - Arthritis [None]
  - Weight increased [None]
  - Therapy change [None]
  - Skin disorder [None]

NARRATIVE: CASE EVENT DATE: 20160720
